FAERS Safety Report 8164458-7 (Version None)
Quarter: 2012Q1

REPORT INFORMATION
  Report Type: 
  Country: None (occurrence: None)
  Receive Date: 20120224
  Receipt Date: 20120224
  Transmission Date: 20120608
  Serious: Yes (Hospitalization, Other)
  Sender: FDA-Public Use
  Company Number: DE-ABBOTT-11P-062-0728813-00

PATIENT
  Sex: Male
  Weight: 57.8 kg

DRUGS (7)
  1. KALETRA [Suspect]
     Indication: HIV INFECTION CDC GROUP III
     Dates: start: 20091228, end: 20110427
  2. PREDNISOLONE [Concomitant]
     Indication: PRODUCT USED FOR UNKNOWN INDICATION
     Dates: start: 20081211, end: 20110511
  3. ASTONIN [Concomitant]
     Indication: PRODUCT USED FOR UNKNOWN INDICATION
     Dates: start: 20081211, end: 20110511
  4. BERODUAL [Suspect]
     Indication: CHRONIC OBSTRUCTIVE PULMONARY DISEASE
     Dates: start: 20081211
  5. ISENTRESS [Suspect]
     Indication: HIV INFECTION
     Dates: start: 20091228
  6. FLUTICASONE PROPIONATE [Suspect]
     Indication: CHRONIC OBSTRUCTIVE PULMONARY DISEASE
     Dates: start: 20081211
  7. TAMSULOSIN HCL [Suspect]
     Indication: BENIGN PROSTATIC HYPERPLASIA
     Dates: start: 20081211

REACTIONS (7)
  - LEUKOPLAKIA [None]
  - TACHYPNOEA [None]
  - DYSPNOEA [None]
  - CACHEXIA [None]
  - PNEUMONIA PRIMARY ATYPICAL [None]
  - GENERAL PHYSICAL HEALTH DETERIORATION [None]
  - CHRONIC OBSTRUCTIVE PULMONARY DISEASE [None]
